FAERS Safety Report 5801401 (Version 4)
Quarter: 2013Q3

REPORT INFORMATION
  Report Type: Spontaneous
  Country: US (occurrence: US)
  Receive Date: 20050512
  Receipt Date: 20130822
  Transmission Date: 20140515
  Serious: Yes (Hospitalization)
  Sender: FDA-Public Use
  Company Number: 2005BI008834

PATIENT
  Age: 46 Year
  Sex: Female

DRUGS (6)
  1. AVONEX [Suspect]
     Indication: MULTIPLE SCLEROSIS
     Route: 030
     Dates: start: 20030513
  2. ASA [Concomitant]
  3. ADVICOR [Concomitant]
  4. NITROGLYCERIN [Concomitant]
  5. METOPROLOL [Concomitant]
  6. PLAVIX [Concomitant]
     Indication: CARDIAC DISORDER

REACTIONS (3)
  - Coronary artery occlusion [Not Recovered/Not Resolved]
  - Abdominal pain upper [Recovered/Resolved]
  - Chest pain [Recovered/Resolved]
